FAERS Safety Report 6561738 (Version 3)
Quarter: 2015Q2

REPORT INFORMATION
  Report Type: Spontaneous
  Country: JP (occurrence: None)
  Receive Date: 20080211
  Receipt Date: 20150427
  Transmission Date: 20150821
  Serious: Yes (Other)
  Sender: FDA-Public Use
  Company Number: 2008JP000517

PATIENT
  Age: 39 Year
  Sex: Female

DRUGS (6)
  1. METHYLPREDNISOLONE SODIUM SUCCINATE (METHYLPREDNISOLONE SODIUM SUCCINATE) [Concomitant]
  2. PROGRAF [Suspect]
     Active Substance: TACROLIMUS\TACROLIMUS ANHYDROUS
     Indication: LIVER TRANSPLANT
     Dosage: TARGET TROUGH LEVEL (NG/ML): 0-7 DAYS AFTER TRANSPLANT; 20-25, 8-21 DAYS:?15-20, 22 DAYS -: 5-10, UNKNOWN
  3. FOY (GABEXATE MESILATE) [Concomitant]
  4. ALPROSTADIL ALFADEX (ALPROSTADIL ALFADEX) [Concomitant]
  5. PREDNISOLONE (PREDNISOLONE) [Concomitant]
     Active Substance: PREDNISOLONE
  6. MIZORIBINE (MIZORIBINE) [Concomitant]

REACTIONS (8)
  - Incorrect dose administered [None]
  - Anaemia [None]
  - Thrombotic microangiopathy [None]
  - Accidental exposure to product [None]
  - Haemolytic anaemia [None]
  - Thrombocytopenia [None]
  - Neurological symptom [None]
  - Epilepsy [None]
